FAERS Safety Report 16246868 (Version 2)
Quarter: 2019Q3

REPORT INFORMATION
  Report Type: Report from Study
  Country: None (occurrence: CO)
  Receive Date: 20190427
  Receipt Date: 20190702
  Transmission Date: 20191004
  Serious: Yes (Other)
  Sender: FDA-Public Use
  Company Number: CO-ABBVIE-19K-036-2678766-00

PATIENT
  Age: 34 Year
  Sex: Female
  Weight: 62 kg

DRUGS (3)
  1. HUMIRA [Suspect]
     Active Substance: ADALIMUMAB
     Indication: COLITIS ULCERATIVE
     Route: 058
     Dates: start: 20171101
  2. HUMIRA [Suspect]
     Active Substance: ADALIMUMAB
     Indication: COLITIS ULCERATIVE
     Route: 058
  3. DEFLAZACORT [Concomitant]
     Active Substance: DEFLAZACORT
     Indication: PRODUCT USED FOR UNKNOWN INDICATION
     Route: 048

REACTIONS (16)
  - Osteitis [Recovering/Resolving]
  - Pain [Recovered/Resolved]
  - Pain in extremity [Recovering/Resolving]
  - Vomiting [Recovered/Resolved]
  - Haematochezia [Not Recovered/Not Resolved]
  - Abdominal pain [Recovered/Resolved]
  - Diarrhoea [Not Recovered/Not Resolved]
  - Femur fracture [Not Recovered/Not Resolved]
  - Diarrhoea [Recovering/Resolving]
  - Discomfort [Unknown]
  - Abdominal pain upper [Unknown]
  - Peripheral swelling [Recovering/Resolving]
  - Haematochezia [Recovering/Resolving]
  - Malaise [Recovered/Resolved]
  - Drug ineffective [Unknown]
  - Abdominal pain [Not Recovered/Not Resolved]

NARRATIVE: CASE EVENT DATE: 20190211
